FAERS Safety Report 6636205-9 (Version None)
Quarter: 2010Q1

REPORT INFORMATION
  Report Type: 
  Country: None (occurrence: None)
  Receive Date: 20100310
  Receipt Date: 20100129
  Transmission Date: 20100710
  Serious: Yes (Death, Life-Threatening)
  Sender: FDA-Public Use
  Company Number: 2010SP003976

PATIENT
  Age: 26 Year
  Sex: Female

DRUGS (10)
  1. MIRTAZAPINE [Suspect]
     Indication: BORDERLINE PERSONALITY DISORDER
     Dosage: 15 MG;PO
     Route: 048
     Dates: start: 20091113, end: 20091115
  2. MIRTAZAPINE [Suspect]
     Indication: DEPRESSION
     Dosage: 15 MG;PO
     Route: 048
     Dates: start: 20091113, end: 20091115
  3. MIRTAZAPINE [Suspect]
     Indication: EATING DISORDER
     Dosage: 15 MG;PO
     Route: 048
     Dates: start: 20091113, end: 20091115
  4. MIRTAZAPINE [Suspect]
     Indication: INSOMNIA
     Dosage: 15 MG;PO
     Route: 048
     Dates: start: 20091113, end: 20091115
  5. SERTRALINE HYDROCHLORIDE (CON.) [Concomitant]
  6. QUETIAPINE FUMARATE (CON.) [Concomitant]
  7. NITRAZEPAM (CON.) [Concomitant]
  8. DAIOKANZOTO (CON.) [Concomitant]
  9. DOMPERIDONE (CON.) [Concomitant]
  10. DIGESTIVES ENZYMES (CON.) [Concomitant]

REACTIONS (4)
  - ANXIETY [None]
  - COMPLETED SUICIDE [None]
  - MIDDLE INSOMNIA [None]
  - SENSE OF OPPRESSION [None]
